FAERS Safety Report 8129431-3 (Version None)
Quarter: 2012Q1

REPORT INFORMATION
  Report Type: 
  Country: None (occurrence: None)
  Receive Date: 20120210
  Receipt Date: 20120206
  Transmission Date: 20120608
  Serious: Yes (Life-Threatening, Other)
  Sender: FDA-Public Use
  Company Number: PHHY2012JP010163

PATIENT
  Age: 31 Year
  Sex: Female

DRUGS (3)
  1. ISONIAZID [Suspect]
     Indication: MYCOBACTERIUM KANSASII INFECTION
     Dosage: UNK
  2. RIFAMPICIN [Suspect]
     Indication: MYCOBACTERIUM KANSASII INFECTION
  3. ETHAMBUTOL HYDROCHLORIDE [Suspect]
     Indication: MYCOBACTERIUM KANSASII INFECTION

REACTIONS (10)
  - BODY TEMPERATURE INCREASED [None]
  - BLOOD PRESSURE INCREASED [None]
  - DECREASED APPETITE [None]
  - OXYGEN SATURATION DECREASED [None]
  - LAZINESS [None]
  - HYPERCAPNIA [None]
  - HEART RATE INCREASED [None]
  - ACIDOSIS [None]
  - ANAEMIA [None]
  - LOSS OF CONSCIOUSNESS [None]
